FAERS Safety Report 12185413 (Version 1)
Quarter: 2016Q1

REPORT INFORMATION
  Report Type: Report from Study
  Country: FR (occurrence: FR)
  Receive Date: 20160316
  Receipt Date: 20160316
  Transmission Date: 20160526
  Serious: Yes (Hospitalization)
  Sender: FDA-Public Use
  Company Number: FR-ABBVIE-16P-056-1584901-00

PATIENT
  Age: 74 Year
  Sex: Male

DRUGS (2)
  1. AMANTADINE [Suspect]
     Active Substance: AMANTADINE
     Indication: PRODUCT USED FOR UNKNOWN INDICATION
     Route: 065
  2. DUODOPA [Suspect]
     Active Substance: CARBIDOPA\LEVODOPA
     Indication: PARKINSON^S DISEASE
     Dosage: CONTINUOUS DAY FLOW RATE: 2.5 ML/H, DAY RHYTHM: 7.00 AM  20.00 PM
     Route: 065
     Dates: start: 20131216

REACTIONS (6)
  - Movement disorder [Unknown]
  - Dyskinesia [Unknown]
  - Torticollis [Unknown]
  - Underdose [Unknown]
  - Dystonia [Unknown]
  - Weight decreased [Unknown]

NARRATIVE: CASE EVENT DATE: 201510
